FAERS Safety Report 7217063-0 (Version None)
Quarter: 2011Q1

REPORT INFORMATION
  Report Type: 
  Country: None (occurrence: None)
  Receive Date: 20110110
  Receipt Date: 20101230
  Transmission Date: 20110831
  Serious: Yes (Hospitalization)
  Sender: FDA-Public Use
  Company Number: FR-NOVOPROD-320870

PATIENT
  Age: 51 Year
  Sex: Female

DRUGS (11)
  1. CO-APROVEL [Concomitant]
     Dosage: 300 MG, QD
     Route: 048
  2. MOPRAL                             /00661201/ [Concomitant]
     Dosage: 20 MG, QD
     Route: 048
  3. GLUCOVANCE [Concomitant]
  4. LEVOTHYROX [Concomitant]
     Dosage: 100 UG, QD
     Route: 048
     Dates: start: 20101102
  5. LODOZ [Concomitant]
     Dosage: 1 DOSE DAILY
     Route: 048
  6. CRESTOR [Concomitant]
     Dosage: 10 MG, QD
     Route: 065
  7. XYZAL [Concomitant]
     Indication: ATOPY
     Dosage: PUNCTUAL
  8. GLUCOPHAGE [Concomitant]
     Dosage: 1500 MG, QD, 3 PER DAT
     Route: 065
  9. BIOCALYPTOL [Concomitant]
     Dosage: 6.55 MG/5 ML
  10. VICTOZA [Suspect]
     Indication: TYPE 2 DIABETES MELLITUS
     Dosage: 18 MG, QD
     Route: 058
     Dates: start: 20101102, end: 20101128
  11. ALLOPURINOL [Suspect]
     Indication: HYPERURICAEMIA
     Dosage: UNK
     Route: 048
     Dates: start: 20101102, end: 20101101

REACTIONS (1)
  - DRUG RASH WITH EOSINOPHILIA AND SYSTEMIC SYMPTOMS [None]
